FAERS Safety Report 4355202-X (Version None)
Quarter: 2004Q2

REPORT INFORMATION
  Report Type: 
  Country: None (occurrence: None)
  Receive Date: 20040510
  Receipt Date: 20040429
  Transmission Date: 20050107
  Serious: Yes (Other)
  Sender: FDA-Public Use
  Company Number: PHEH2004US04806

PATIENT
  Age: 58 Year
  Sex: Female

DRUGS (6)
  1. ZOMETA [Suspect]
     Indication: METASTASES TO BONE
     Dosage: 4 MG MONTHLY
     Route: 042
     Dates: start: 20020901, end: 20040405
  2. TAMOXIFEN CITRATE [Concomitant]
  3. NAVELBINE [Concomitant]
  4. FEMARA [Concomitant]
  5. XELODA [Concomitant]
  6. TAXOL [Concomitant]

REACTIONS (1)
  - OSTEOMYELITIS [None]
